FAERS Safety Report 5189983-2 (Version None)
Quarter: 2006Q4

REPORT INFORMATION
  Report Type: 
  Country: None (occurrence: None)
  Receive Date: 20061218
  Receipt Date: 20061208
  Transmission Date: 20070319
  Serious: Yes (Other)
  Sender: FDA-Public Use
  Company Number: 233602

PATIENT
  Age: 52 Year
  Sex: Female

DRUGS (1)
  1. METALYSE [Suspect]
     Indication: DRUG USE FOR UNKNOWN INDICATION
     Dosage: SINGLE, INTRAVENOUS
     Route: 042
     Dates: start: 20030620, end: 20060620

REACTIONS (1)
  - PANCREATITIS HAEMORRHAGIC [None]
